FAERS Safety Report 15818941 (Version 1)
Quarter: 2019Q1

REPORT INFORMATION
  Report Type: Report from Study
  Country: FR (occurrence: FR)
  Receive Date: 20190114
  Receipt Date: 20190114
  Transmission Date: 20190417
  Serious: Yes (Hospitalization)
  Sender: FDA-Public Use
  Company Number: FR-CELLTRION INC.-2018FR019682

PATIENT

DRUGS (3)
  1. INFLIXIMAB PFIZER (UNKNOWN) [Suspect]
     Active Substance: INFLIXIMAB
     Indication: CROHN^S DISEASE
     Dosage: 400 MG, 2X/MONTH
     Route: 065
     Dates: start: 20170404, end: 201711
  2. METHOTREXATE. [Concomitant]
     Active Substance: METHOTREXATE
     Indication: CROHN^S DISEASE
     Dosage: UNK
     Dates: start: 20170516
  3. INFLIXIMAB PFIZER (UNKNOWN) [Suspect]
     Active Substance: INFLIXIMAB
     Dosage: 400 MG 2X/MONTH
     Route: 065
     Dates: start: 20180222

REACTIONS (2)
  - Large intestinal stenosis [Recovering/Resolving]
  - Large intestinal ulcer [Recovering/Resolving]

NARRATIVE: CASE EVENT DATE: 20180425
